FAERS Safety Report 8449138-2 (Version None)
Quarter: 2012Q2

REPORT INFORMATION
  Report Type: 
  Country: None (occurrence: None)
  Receive Date: 20120619
  Receipt Date: 20120607
  Transmission Date: 20120825
  Serious: Yes (Other)
  Sender: FDA-Public Use
  Company Number: US-SANOFI-AVENTIS-2012SA040985

PATIENT
  Sex: Male

DRUGS (1)
  1. PLAVIX [Suspect]
     Dates: start: 20030101

REACTIONS (4)
  - CHEST PAIN [None]
  - ARRHYTHMIA [None]
  - MYOCARDIAL INFARCTION [None]
  - CHEST DISCOMFORT [None]
